FAERS Safety Report 7770752-1 (Version None)
Quarter: 2011Q3

REPORT INFORMATION
  Report Type: 
  Country: None (occurrence: None)
  Receive Date: 20110922
  Receipt Date: 20110627
  Transmission Date: 20111222
  Serious: No
  Sender: FDA-Public Use
  Company Number: US-ASTRAZENECA-2011SE38675

PATIENT
  Age: 60 Year
  Sex: Female
  Weight: 77.1 kg

DRUGS (5)
  1. SEROQUEL [Suspect]
     Indication: DEPRESSION
     Dosage: 200MG-400MG
     Route: 048
  2. SEROQUEL [Suspect]
     Route: 048
  3. SEROQUEL [Suspect]
     Route: 048
  4. WELLBUTRIN [Concomitant]
  5. SEROQUEL [Suspect]
     Indication: ANXIETY
     Dosage: 200MG-400MG
     Route: 048

REACTIONS (5)
  - MOOD SWINGS [None]
  - DISTURBANCE IN ATTENTION [None]
  - HALLUCINATION [None]
  - PSYCHOMOTOR HYPERACTIVITY [None]
  - INCOHERENT [None]
